FAERS Safety Report 4493841-6 (Version None)
Quarter: 2004Q4

REPORT INFORMATION
  Report Type: 
  Country: None (occurrence: None)
  Receive Date: 20041102
  Receipt Date: 20041019
  Transmission Date: 20050328
  Serious: Yes (Other)
  Sender: FDA-Public Use
  Company Number: 2004240651CH

PATIENT
  Sex: Female

DRUGS (11)
  1. IDARUBICIN HCL [Suspect]
     Indication: ACUTE MYELOID LEUKAEMIA
     Dosage: IV
     Route: 042
     Dates: start: 20040824, end: 20040825
  2. ZOFRAN [Suspect]
     Indication: VOMITING
     Dosage: IV
     Route: 042
     Dates: start: 20040825, end: 20040828
  3. ACETAMINOPHEN [Concomitant]
  4. DUPHASTON [Concomitant]
  5. VALTREX (VALCICLOVIR HYDROCHLORIDE) [Concomitant]
  6. CYTOSAR-U [Concomitant]
  7. KONAKION [Concomitant]
  8. AZACTAM [Concomitant]
  9. TARGOCID [Concomitant]
  10. LIQUAEMIN INJ [Concomitant]
  11. DIFLUCAN [Concomitant]

REACTIONS (2)
  - BRADYCARDIA [None]
  - BUNDLE BRANCH BLOCK LEFT [None]
